FAERS Safety Report 4327514-7 (Version None)
Quarter: 2004Q1

REPORT INFORMATION
  Report Type: 
  Country: None (occurrence: None)
  Receive Date: 20040330
  Receipt Date: 20040330
  Transmission Date: 20041129
  Serious: Yes (Life-Threatening)
  Sender: FDA-Public Use
  Company Number: None

PATIENT
  Age: 71 Year
  Sex: Female
  Weight: 62.1428 kg

DRUGS (2)
  1. NAMENDA [Suspect]
     Indication: DEMENTIA ALZHEIMER'S TYPE
     Dosage: 10 MG BID PO ORAL
     Route: 048
     Dates: start: 20040311, end: 30040330
  2. REMINYL [Concomitant]

REACTIONS (2)
  - EYE MOVEMENT DISORDER [None]
  - MOVEMENT DISORDER [None]
